FAERS Safety Report 6425896-3 (Version None)
Quarter: 2009Q4

REPORT INFORMATION
  Report Type: 
  Country: None (occurrence: None)
  Receive Date: 20091029
  Receipt Date: 20091021
  Transmission Date: 20100525
  Serious: Yes (Other)
  Sender: FDA-Public Use
  Company Number: 2009SP032109

PATIENT
  Age: 14 Year
  Sex: Male

DRUGS (1)
  1. CORICIDIN [Suspect]
     Indication: DRUG USE FOR UNKNOWN INDICATION
     Dosage: 21 DF; PO
     Route: 048
     Dates: start: 20091001

REACTIONS (7)
  - APHASIA [None]
  - DRUG ABUSE [None]
  - DYSSTASIA [None]
  - EYE MOVEMENT DISORDER [None]
  - GAIT DISTURBANCE [None]
  - HYPERTENSION [None]
  - INCORRECT DOSE ADMINISTERED [None]
